FAERS Safety Report 12064313 (Version 2)
Quarter: 2016Q3

REPORT INFORMATION
  Report Type: Report from Study
  Country: SA (occurrence: SA)
  Receive Date: 20160210
  Receipt Date: 20160718
  Transmission Date: 20161109
  Serious: Yes (Other)
  Sender: FDA-Public Use
  Company Number: SA-PFIZER INC-2016069412

PATIENT

DRUGS (2)
  1. ALPROSTADIL. [Suspect]
     Active Substance: ALPROSTADIL
     Indication: HYPOPLASTIC RIGHT HEART SYNDROME
     Dosage: 0.05 TO 0.10 ?G/KG/MIN
     Route: 042
  2. ALPROSTADIL. [Suspect]
     Active Substance: ALPROSTADIL
     Indication: PULMONARY VALVE DISEASE

REACTIONS (3)
  - Obstruction gastric [Unknown]
  - Hypotension [Unknown]
  - Feeding intolerance [Unknown]
